FAERS Safety Report 7420733-2 (Version None)
Quarter: 2011Q2

REPORT INFORMATION
  Report Type: 
  Country: None (occurrence: None)
  Receive Date: 20110418
  Receipt Date: 20110408
  Transmission Date: 20111010
  Serious: Yes (Hospitalization)
  Sender: FDA-Public Use
  Company Number: JP-ROCHE-756131

PATIENT
  Sex: Male

DRUGS (26)
  1. TOCILIZUMAB [Suspect]
     Route: 041
     Dates: start: 20090408, end: 20090408
  2. TOCILIZUMAB [Suspect]
     Route: 041
     Dates: start: 20090701, end: 20090701
  3. TOCILIZUMAB [Suspect]
     Route: 041
     Dates: start: 20100924, end: 20100924
  4. TOCILIZUMAB [Suspect]
     Route: 041
     Dates: start: 20101118, end: 20101118
  5. RHEUMATREX [Concomitant]
     Route: 048
     Dates: start: 20090730, end: 20100113
  6. FOLIC ACID [Concomitant]
     Route: 048
     Dates: start: 20090730, end: 20100113
  7. TOCILIZUMAB [Suspect]
     Route: 041
     Dates: start: 20100826, end: 20100826
  8. TOCILIZUMAB [Suspect]
     Route: 041
     Dates: start: 20101021, end: 20101021
  9. PREDONINE [Suspect]
     Route: 048
     Dates: start: 20090311, end: 20090924
  10. CYTOTEC [Concomitant]
     Route: 048
  11. TOCILIZUMAB [Suspect]
     Route: 041
     Dates: start: 20090212, end: 20090212
  12. BONALON [Concomitant]
     Route: 048
  13. BAKTAR [Concomitant]
     Route: 048
     Dates: start: 20090730, end: 20100113
  14. TOCILIZUMAB [Suspect]
     Route: 041
     Dates: start: 20100729, end: 20100729
  15. VOLTAREN [Concomitant]
     Dosage: SINGLE USE, DOSAGE DURING A DAY: 25 MG
     Route: 054
  16. TOCILIZUMAB [Suspect]
     Route: 041
     Dates: start: 20090507, end: 20090507
  17. PREDONINE [Suspect]
     Indication: RHEUMATOID ARTHRITIS
     Route: 048
     Dates: end: 20090310
  18. TOCILIZUMAB [Suspect]
     Route: 041
     Dates: start: 20090311, end: 20090311
  19. TOCILIZUMAB [Suspect]
     Route: 041
     Dates: start: 20110113, end: 20110113
  20. HALCION [Concomitant]
     Dosage: AS NEEDED 0.25 MG A DAY
     Route: 048
  21. PARIET [Concomitant]
     Route: 048
  22. TOCILIZUMAB [Suspect]
     Indication: RHEUMATOID ARTHRITIS
     Route: 041
     Dates: start: 20090114, end: 20090114
  23. TOCILIZUMAB [Suspect]
     Route: 041
     Dates: start: 20090603, end: 20090603
  24. PREDONINE [Suspect]
     Route: 048
     Dates: start: 20090925
  25. TOCILIZUMAB [Suspect]
     Route: 041
     Dates: start: 20101216, end: 20101216
  26. ETODOLAC [Concomitant]
     Route: 048

REACTIONS (5)
  - ANGINA PECTORIS [None]
  - CHEST PAIN [None]
  - ECZEMA [None]
  - BLOOD CHOLESTEROL INCREASED [None]
  - ARTHRITIS [None]
